FAERS Safety Report 9824067 (Version 2)
Quarter: 2014Q1

REPORT INFORMATION
  Report Type: Spontaneous
  Country: US (occurrence: US)
  Receive Date: 20140116
  Receipt Date: 20140116
  Transmission Date: 20141002
  Serious: No
  Sender: FDA-Public Use
  Company Number: US-GILEAD-2011-0038338

PATIENT
  Sex: Female

DRUGS (26)
  1. LETAIRIS [Suspect]
     Indication: PULMONARY ARTERIAL HYPERTENSION
     Route: 048
     Dates: start: 20110409
  2. LETAIRIS [Suspect]
     Route: 048
     Dates: start: 20100312, end: 20110302
  3. REVATIO [Concomitant]
  4. ATENOLOL [Concomitant]
  5. ALBUTEROL SULFATE [Concomitant]
  6. PRO-AIR HFA [Concomitant]
  7. OMEPRAZOLE [Concomitant]
  8. APAP CODEINE [Concomitant]
  9. ULTRAM [Concomitant]
  10. ADVIL [Concomitant]
  11. EXCEDRIN [Concomitant]
  12. EFFEXOR [Concomitant]
  13. IMITREX [Concomitant]
  14. LEVOTHYROXINE [Concomitant]
  15. MIRAPEX [Concomitant]
  16. PREDNISONE [Concomitant]
  17. ROBITUSSIN-AC [Concomitant]
  18. SUMATRIPTAN SUCCINATE [Concomitant]
  19. VENLAFAXINE [Concomitant]
  20. OXYGEN THERAPY [Concomitant]
  21. CALCIUM [Concomitant]
  22. FERROUS SULFATE [Concomitant]
  23. MAGNESIUM [Concomitant]
  24. MULTI-VIT/MINERALS [Concomitant]
  25. VITAMIN D [Concomitant]
  26. VIT C [Concomitant]

REACTIONS (1)
  - Liver function test abnormal [Unknown]
